FAERS Safety Report 6147062-1 (Version None)
Quarter: 2009Q2

REPORT INFORMATION
  Report Type: 
  Country: None (occurrence: None)
  Receive Date: 20090402
  Receipt Date: 20090323
  Transmission Date: 20091009
  Serious: Yes (Other)
  Sender: FDA-Public Use
  Company Number: 2009002062

PATIENT

DRUGS (12)
  1. FENTANYL CITRATE [Suspect]
  2. LINEZOLID [Suspect]
  3. DOMPERIDONE (DOMPERIDONE) [Concomitant]
  4. OMEPRAZOLE [Concomitant]
  5. CIPROFLOXACIN [Concomitant]
  6. RIFAMPICIN [Concomitant]
  7. DICLOFENAC (DICLOFENAC) [Concomitant]
  8. DIGOXIN [Concomitant]
  9. MILRINONE (MILRINONE) [Concomitant]
  10. BUMETADINE (BUMETANIDE) [Concomitant]
  11. MORPHINE [Concomitant]
  12. MIDAZOLAM HCL [Concomitant]

REACTIONS (2)
  - DRUG INTERACTION [None]
  - SEROTONIN SYNDROME [None]
